FAERS Safety Report 12367474 (Version 2)
Quarter: 2016Q2

REPORT INFORMATION
  Report Type: Spontaneous
  Country: US (occurrence: US)
  Receive Date: 20160513
  Receipt Date: 20160603
  Transmission Date: 20160815
  Serious: Yes (Hospitalization)
  Sender: FDA-Public Use
  Company Number: US-JNJFOC-20160404806

PATIENT
  Age: 45 Year
  Sex: Female

DRUGS (1)
  1. INVEGA TRINZA [Suspect]
     Active Substance: PALIPERIDONE PALMITATE
     Indication: SCHIZOAFFECTIVE DISORDER
     Dosage: APPARENTLY STARTED IN MAR-2016
     Route: 030
     Dates: start: 2016, end: 2016

REACTIONS (3)
  - Paranoia [Not Recovered/Not Resolved]
  - Psychotic disorder [Not Recovered/Not Resolved]
  - Delusion [Not Recovered/Not Resolved]

NARRATIVE: CASE EVENT DATE: 2016
